FAERS Safety Report 9795909 (Version 2)
Quarter: 2014Q1

REPORT INFORMATION
  Report Type: Spontaneous
  Country: TR (occurrence: TR)
  Receive Date: 20140103
  Receipt Date: 20140120
  Transmission Date: 20141002
  Serious: Yes (Hospitalization)
  Sender: FDA-Public Use
  Company Number: TR-NOVOPROD-396540

PATIENT
  Age: 3 Week
  Sex: Female
  Weight: .84 kg

DRUGS (3)
  1. LEVEMIR FLEXPEN [Suspect]
     Indication: GESTATIONAL DIABETES
     Dosage: 8 U, QD
     Route: 064
     Dates: start: 20131112, end: 20131204
  2. LEVEMIR FLEXPEN [Suspect]
     Indication: GESTATIONAL DIABETES
     Dosage: 8 U, QD
     Route: 064
     Dates: start: 20131112, end: 20131204
  3. HUMALOG [Concomitant]
     Dosage: 12 U, QD (HUMALOG PREFILL 100 IU/ML)
     Route: 058
     Dates: start: 20131112, end: 20131204

REACTIONS (4)
  - Premature baby [Not Recovered/Not Resolved]
  - Neonatal infection [Recovered/Resolved]
  - Neonatal respiratory distress syndrome [Recovered/Resolved]
  - Foetal exposure during pregnancy [Unknown]
